FAERS Safety Report 5763606-3 (Version None)
Quarter: 2008Q2

REPORT INFORMATION
  Report Type: 
  Country: None (occurrence: None)
  Receive Date: 20080610
  Receipt Date: 20080603
  Transmission Date: 20081010
  Serious: Yes (Death)
  Sender: FDA-Public Use
  Company Number: PHHO2008US03492

PATIENT
  Sex: Female
  Weight: 54.2 kg

DRUGS (6)
  1. EXELON [Suspect]
     Indication: DEMENTIA ALZHEIMER'S TYPE
     Dosage: 10 CM2, UNK
     Route: 062
     Dates: start: 20070911, end: 20080308
  2. EXELON [Suspect]
     Indication: DEMENTIA ALZHEIMER'S TYPE
     Dosage: NO TREATMENT
  3. BLINDED NO TREATMENT RECEIVED NOMED [Suspect]
     Indication: DEMENTIA ALZHEIMER'S TYPE
     Dosage: NO TREATMENT
  4. SEROQUEL [Concomitant]
     Indication: HALLUCINATION
  5. LASIX [Concomitant]
     Indication: FLUID RETENTION
  6. PAXIL [Concomitant]
     Indication: DEPRESSION

REACTIONS (2)
  - CRYPTOGENIC CIRRHOSIS [None]
  - DISEASE PROGRESSION [None]
